FAERS Safety Report 13854280 (Version 1)
Quarter: 2017Q3

REPORT INFORMATION
  Report Type: Spontaneous
  Country: US (occurrence: US)
  Receive Date: 20170810
  Receipt Date: 20170810
  Transmission Date: 20171127
  Serious: Yes (Other)
  Sender: FDA-Public Use
  Company Number: US-GUERBET-US-20170144

PATIENT
  Age: 46 Year
  Sex: Female

DRUGS (4)
  1. EPINEPHRINE. [Suspect]
     Active Substance: EPINEPHRINE
     Indication: ARTHROGRAM
     Route: 014
     Dates: start: 20170803, end: 20170803
  2. DOTAREM [Suspect]
     Active Substance: GADOTERATE MEGLUMINE
     Indication: ARTHROGRAM
     Route: 014
     Dates: start: 20170803, end: 20170803
  3. SALINE [Suspect]
     Active Substance: SODIUM CHLORIDE
     Indication: ARTHROGRAM
     Route: 014
     Dates: start: 20170803, end: 20170803
  4. ISOVUE [Suspect]
     Active Substance: IOPAMIDOL
     Indication: ARTHROGRAM
     Route: 014
     Dates: start: 20170803, end: 20170803

REACTIONS (3)
  - Cyanosis [Recovered/Resolved]
  - Product use in unapproved indication [Recovered/Resolved]
  - Anaphylactic reaction [Recovered/Resolved]

NARRATIVE: CASE EVENT DATE: 20170803
